FAERS Safety Report 5754060-6 (Version None)
Quarter: 2008Q2

REPORT INFORMATION
  Report Type: 
  Country: None (occurrence: None)
  Receive Date: 20080527
  Receipt Date: 20080527
  Transmission Date: 20081010
  Serious: Yes (Other)
  Sender: FDA-Public Use
  Company Number: None

PATIENT
  Age: 55 Year
  Sex: Female
  Weight: 99.7913 kg

DRUGS (1)
  1. AVAPRO [Suspect]
     Indication: HYPERTENSION
     Dosage: ONE PILL ONCE A DAY PO
     Route: 048
     Dates: start: 20060729, end: 20060807

REACTIONS (11)
  - BODY TEMPERATURE INCREASED [None]
  - BURNING SENSATION [None]
  - CAUSTIC INJURY [None]
  - DISCOMFORT [None]
  - DRY SKIN [None]
  - FLATULENCE [None]
  - INFLUENZA [None]
  - MUSCULAR WEAKNESS [None]
  - OEDEMA PERIPHERAL [None]
  - RASH ERYTHEMATOUS [None]
  - VOMITING [None]
